FAERS Safety Report 5209631-2 (Version None)
Quarter: 2007Q1

REPORT INFORMATION
  Report Type: 
  Country: None (occurrence: None)
  Receive Date: 20070116
  Receipt Date: 20061214
  Transmission Date: 20070707
  Serious: Yes (Death, Other)
  Sender: FDA-Public Use
  Company Number: KR-PFIZER INC-2006154272

PATIENT
  Sex: Male
  Weight: 69 kg

DRUGS (1)
  1. ZYVOX [Suspect]
     Indication: PNEUMONIA
     Route: 042
     Dates: start: 20050802, end: 20050806

REACTIONS (2)
  - DEATH [None]
  - HAEMOPTYSIS [None]
